FAERS Safety Report 6870811-1 (Version None)
Quarter: 2010Q3

REPORT INFORMATION
  Report Type: 
  Country: None (occurrence: None)
  Receive Date: 20100723
  Receipt Date: 20100712
  Transmission Date: 20110219
  Serious: Yes (Other)
  Sender: FDA-Public Use
  Company Number: US-JNJFOC-20100607020

PATIENT
  Sex: Female

DRUGS (8)
  1. REMICADE [Suspect]
     Indication: RHEUMATOID ARTHRITIS
     Route: 042
  2. REMICADE [Suspect]
     Route: 042
  3. REMICADE [Suspect]
     Route: 042
  4. SOLU-MEDROL [Concomitant]
     Indication: PREMEDICATION
  5. ATENOLOL [Concomitant]
     Indication: BLOOD PRESSURE
  6. PEPCID [Concomitant]
  7. ALLEGRA [Concomitant]
  8. NORVASC [Concomitant]

REACTIONS (6)
  - DYSPNOEA [None]
  - FEELING COLD [None]
  - FEELING HOT [None]
  - INFUSION RELATED REACTION [None]
  - OXYGEN SATURATION DECREASED [None]
  - RHEUMATOID ARTHRITIS [None]
